FAERS Safety Report 10238788 (Version 1)
Quarter: 2014Q2

REPORT INFORMATION
  Report Type: Spontaneous
  Country: US (occurrence: None)
  Receive Date: 20140613
  Receipt Date: 20140613
  Transmission Date: 20141212
  Serious: No
  Sender: FDA-Public Use
  Company Number: None

PATIENT
  Age: 43 Year
  Sex: Female

DRUGS (9)
  1. TECFIDERA [Suspect]
     Indication: MULTIPLE SCLEROSIS
     Route: 048
     Dates: end: 20130504
  2. SYNTHROID [Concomitant]
  3. ASPIRIN [Concomitant]
  4. TECFIDERA [Concomitant]
  5. WELLBUTRIN [Concomitant]
  6. ADDERALL [Concomitant]
  7. TRAZADONE [Concomitant]
  8. VITAMIN D [Concomitant]
  9. B-12 [Concomitant]

REACTIONS (12)
  - Alopecia [None]
  - Gastrointestinal pain [None]
  - Gastrointestinal disorder [None]
  - Oral mucosal blistering [None]
  - Oral pain [None]
  - Alopecia [None]
  - Dyspepsia [None]
  - Flushing [None]
  - Pruritus [None]
  - Fatigue [None]
  - Weight increased [None]
  - Rhinorrhoea [None]
